FAERS Safety Report 22692772 (Version 2)
Quarter: 2024Q3

REPORT INFORMATION
  Report Type: Spontaneous
  Country: US (occurrence: US)
  Receive Date: 20230711
  Receipt Date: 20240722
  Transmission Date: 20241017
  Serious: No
  Sender: ASTELLAS
  Company Number: US-ASTPRD-AER-2022-017118

PATIENT
  Sex: Male

DRUGS (3)
  1. MYRBETRIQ [Suspect]
     Active Substance: MIRABEGRON
     Indication: Hypertonic bladder
     Dosage: 25 MG, ONCE DAILY (TAKING HALF OF A 50MG MYRBETRIQ TABLET TO GET 25MG DOSE)
     Route: 048
  2. MYRBETRIQ [Suspect]
     Active Substance: MIRABEGRON
     Indication: Prostatomegaly
  3. MYRBETRIQ [Suspect]
     Active Substance: MIRABEGRON
     Indication: Chronic kidney disease

REACTIONS (2)
  - Wrong technique in product usage process [Unknown]
  - Off label use [Unknown]
